FAERS Safety Report 13288407 (Version 1)
Quarter: 2017Q1

REPORT INFORMATION
  Report Type: Spontaneous
  Country: US (occurrence: US)
  Receive Date: 20170302
  Receipt Date: 20170302
  Transmission Date: 20170428
  Serious: Yes (Hospitalization, Other)
  Sender: FDA-Public Use
  Company Number: US-NOVOPROD-533560

PATIENT
  Age: 60 Year
  Sex: Male
  Weight: 113.38 kg

DRUGS (4)
  1. TRESIBA FLEXTOUCH U200 [Suspect]
     Active Substance: INSULIN DEGLUDEC
     Dosage: 135 U, QD
     Route: 058
     Dates: end: 20170216
  2. HUMALOG [Concomitant]
     Active Substance: INSULIN LISPRO
     Dosage: 35 U 30 MINUTES BEFORE EACH MEAL
     Route: 058
  3. TRESIBA FLEXTOUCH U200 [Suspect]
     Active Substance: INSULIN DEGLUDEC
     Indication: TYPE 2 DIABETES MELLITUS
     Dosage: 130 U, QD
     Route: 058
     Dates: start: 201512
  4. HUMALOG [Concomitant]
     Active Substance: INSULIN LISPRO
     Indication: TYPE 2 DIABETES MELLITUS
     Dosage: 30 UNITS 30 MINUTES BEFORE EACH MEAL
     Route: 058

REACTIONS (7)
  - Dyspnoea [Recovered/Resolved]
  - Weight increased [Not Recovered/Not Resolved]
  - Bronchitis [Not Recovered/Not Resolved]
  - Breathing-related sleep disorder [Recovered/Resolved]
  - Coronary artery occlusion [Recovered/Resolved]
  - Pulmonary mass [Not Recovered/Not Resolved]
  - Bronchitis [Not Recovered/Not Resolved]

NARRATIVE: CASE EVENT DATE: 201512
